FAERS Safety Report 21674470 (Version 1)
Quarter: 2022Q4

REPORT INFORMATION
  Report Type: Spontaneous
  Country: US (occurrence: None)
  Receive Date: 20221201
  Receipt Date: 20221201
  Transmission Date: 20230112
  Serious: Yes (Disabling)
  Sender: FDA-Public Use
  Company Number: None

PATIENT
  Age: 46 Year
  Sex: Female
  Weight: 72 kg

DRUGS (2)
  1. CIPROFLOXACIN [Suspect]
     Active Substance: CIPROFLOXACIN
     Indication: Diverticulitis
     Route: 042
     Dates: start: 20020308, end: 20200317
  2. CIPROFLOXACIN [Suspect]
     Active Substance: CIPROFLOXACIN
     Indication: Colonic abscess

REACTIONS (17)
  - Diarrhoea [None]
  - Asthenia [None]
  - Burning sensation [None]
  - Neuralgia [None]
  - Psychotic disorder [None]
  - Depression [None]
  - Thinking abnormal [None]
  - Suicidal ideation [None]
  - Hallucination, visual [None]
  - Hypoaesthesia [None]
  - Amnesia [None]
  - Muscular weakness [None]
  - Blindness [None]
  - Tendon pain [None]
  - Dyskinesia [None]
  - Disturbance in attention [None]
  - Speech disorder [None]

NARRATIVE: CASE EVENT DATE: 20220308
